FAERS Safety Report 8499212-X (Version None)
Quarter: 2012Q2

REPORT INFORMATION
  Report Type: 
  Country: None (occurrence: None)
  Receive Date: 20120405
  Receipt Date: 20110104
  Transmission Date: 20120825
  Serious: Yes (Disabling)
  Sender: FDA-Public Use
  Company Number: PHHY2010US80940

PATIENT
  Age: 72 Year
  Sex: Female
  Weight: 66 kg

DRUGS (5)
  1. CRESTOR [Concomitant]
  2. THYROID THERAPY (NO INGREDIENTS/SUBSTANCES) [Concomitant]
  3. DRUG USED IN DIABETES (NO INGREDIENTS/SUBSTANCES) [Concomitant]
  4. RECLAST [Suspect]
     Indication: OSTEOPOROTIC FRACTURE
     Dosage: 5 MG,, INFUSION
     Dates: start: 20101117
  5. FUROSEMIDE [Concomitant]

REACTIONS (3)
  - GAIT DISTURBANCE [None]
  - JOINT SWELLING [None]
  - ARTHRALGIA [None]
